FAERS Safety Report 4621811-3 (Version None)
Quarter: 2005Q1

REPORT INFORMATION
  Report Type: 
  Country: None (occurrence: None)
  Receive Date: 20050329
  Receipt Date: 20050318
  Transmission Date: 20050727
  Serious: Yes (Hospitalization)
  Sender: FDA-Public Use
  Company Number: US-ROCHE-399077

PATIENT
  Age: 51 Year
  Sex: Female
  Weight: 93.9 kg

DRUGS (6)
  1. CAPECITABINE [Suspect]
     Dosage: GIVEN ON DAYS 1 - 14 OF A 3 WEEK CYCLE.
     Route: 048
     Dates: start: 20050209
  2. DOCETAXEL [Suspect]
     Route: 042
     Dates: start: 20050204, end: 20050216
  3. DECADRON [Concomitant]
     Dates: start: 20050208
  4. VITAMIN B6 [Concomitant]
     Dates: start: 20050207
  5. AMBIEN [Concomitant]
     Dates: start: 20050207
  6. ZOFRAN [Concomitant]
     Dates: start: 20050209

REACTIONS (4)
  - CONDITION AGGRAVATED [None]
  - HERPES SIMPLEX [None]
  - MUCOSAL INFLAMMATION [None]
  - MUCOSAL ULCERATION [None]
